FAERS Safety Report 19974209 (Version 1)
Quarter: 2021Q4

REPORT INFORMATION
  Report Type: Spontaneous
  Country: US (occurrence: US)
  Receive Date: 20211020
  Receipt Date: 20211020
  Transmission Date: 20220303
  Serious: Yes (Other)
  Sender: FDA-Public Use
  Company Number: US-RECKITT BENCKISER HEALTHCARE INT LIMITED-RB-96900-2021

PATIENT
  Age: 66 Year
  Sex: Male

DRUGS (1)
  1. MUCINEX SINUS - MAX DAY / NIGHT [Suspect]
     Active Substance: ACETAMINOPHEN\DEXTROMETHORPHAN HYDROBROMIDE\DOXYLAMINE SUCCINATE\GUAIFENESIN\PHENYLEPHRINE HYDROCHLO
     Indication: Product used for unknown indication
     Dosage: 2 DOSAGE FORM (PATIENT TOOK TOTAL OF 2 CAPSULES, 2 LIQUID GELS EVERY 4 HOURS)
     Route: 048
     Dates: start: 20211014, end: 202110

REACTIONS (4)
  - Choking [Recovered/Resolved]
  - Foreign body in throat [Recovered/Resolved]
  - Dysphonia [Not Recovered/Not Resolved]
  - Product size issue [Unknown]

NARRATIVE: CASE EVENT DATE: 20211014
